FAERS Safety Report 7376329-4 (Version None)
Quarter: 2011Q1

REPORT INFORMATION
  Report Type: 
  Country: None (occurrence: None)
  Receive Date: 20110325
  Receipt Date: 20110316
  Transmission Date: 20110831
  Serious: No
  Sender: FDA-Public Use
  Company Number: US-B.I. PHARMACEUTICALS,INC./RIDGEFIELD-2011-BP-01036BP

PATIENT
  Sex: Male

DRUGS (17)
  1. AMIODARONE HCL [Concomitant]
     Indication: ATRIAL FIBRILLATION
  2. ZOCOR [Concomitant]
     Indication: DYSLIPIDAEMIA
  3. ZOLOFT [Concomitant]
     Indication: DEPRESSION
  4. LASIX [Concomitant]
     Indication: CARDIAC FAILURE CONGESTIVE
  5. DEPLIN [Concomitant]
     Indication: DEPRESSION
  6. TOPROL-XL [Concomitant]
     Indication: HYPERTENSION
  7. AVODART [Concomitant]
  8. PRADAXA [Suspect]
     Indication: ATRIAL FIBRILLATION
     Dosage: 300 MG
     Route: 048
     Dates: start: 20101101
  9. PROVENTIL [Concomitant]
  10. NORVASC [Concomitant]
     Indication: HYPERTENSION
  11. SPIRONOLACTONE [Concomitant]
     Indication: CARDIAC FAILURE CONGESTIVE
  12. AVAPRO [Concomitant]
     Indication: HYPERTENSION
  13. NEXIUM [Concomitant]
  14. METFORMIN HCL [Concomitant]
     Indication: DIABETES MELLITUS
  15. MULTIVITAMIN [Concomitant]
     Indication: PROPHYLAXIS
  16. ASPIRIN [Concomitant]
     Indication: PROPHYLAXIS
  17. POTASSIUM CHLORIDE [Concomitant]
     Indication: PROPHYLAXIS

REACTIONS (2)
  - CREATININE RENAL CLEARANCE DECREASED [None]
  - CREATININE RENAL CLEARANCE [None]
